FAERS Safety Report 8878982 (Version 1)
Quarter: 2012Q4

REPORT INFORMATION
  Report Type: 
  Country: DK (occurrence: FR)
  Receive Date: 20121026
  Receipt Date: 20121026
  Transmission Date: 20130627
  Serious: Yes (Death, Hospitalization)
  Sender: FDA-Public Use
  Company Number: FR-FRI-1000039790

PATIENT
  Age: 80 Year
  Sex: Female

DRUGS (14)
  1. ESCITALOPRAM [Suspect]
     Indication: DEPRESSION
     Dosage: 10 mg
     Route: 048
     Dates: start: 20120824, end: 20120826
  2. ILOPROST [Suspect]
     Indication: ISCHAEMIA
     Dosage: 0.5 mg
     Route: 042
     Dates: start: 20120816, end: 20120820
  3. ARICEPT [Suspect]
     Indication: DEMENTIA ALZHEIMER^S TYPE
     Dosage: 10 mg
     Route: 048
     Dates: end: 20120903
  4. PREVISCAN [Suspect]
     Indication: PROPHYLAXIS
     Dosage: 10 mg
     Route: 048
     Dates: start: 20120814, end: 20120822
  5. XATRAL [Suspect]
     Indication: URINARY RETENTION
     Dosage: 10 mg
     Route: 048
     Dates: end: 20120814
  6. FLUCONAZOLE [Suspect]
     Indication: INFECTION
     Dosage: 200 mg
     Route: 048
     Dates: end: 20120814
  7. DRIPTANE [Concomitant]
     Dates: end: 20120824
  8. PARACETAMOL [Concomitant]
     Dates: end: 20120904
  9. INEXIUM [Concomitant]
     Dates: end: 20120904
  10. EFFIZINC [Concomitant]
     Dates: end: 20120902
  11. DIFFU-K [Concomitant]
  12. VITAMIN D [Concomitant]
  13. FUROSEMIDE [Concomitant]
     Dates: end: 20120814
  14. VANCOMYCIN [Concomitant]
     Dates: end: 20120820

REACTIONS (7)
  - Hepatitis cholestatic [Fatal]
  - Lipase increased [None]
  - Cholelithiasis [None]
  - Carotid artery stenosis [None]
  - Clostridium difficile colitis [None]
  - Melaena [None]
  - Sepsis [None]
